FAERS Safety Report 12467519 (Version 1)
Quarter: 2016Q2

REPORT INFORMATION
  Report Type: Spontaneous
  Country: None (occurrence: None)
  Receive Date: 20160614
  Receipt Date: 20160614
  Transmission Date: 20160815
  Serious: No
  Sender: FDA-Public Use
  Company Number: None

PATIENT

DRUGS (1)
  1. BELLADONNA AND OPIUM [Suspect]
     Active Substance: ATROPA BELLADONNA\OPIUM

REACTIONS (1)
  - Product label confusion [None]

NARRATIVE: CASE EVENT DATE: 20160519
